FAERS Safety Report 6380742-1 (Version None)
Quarter: 2009Q3

REPORT INFORMATION
  Report Type: 
  Country: None (occurrence: None)
  Receive Date: 20090929
  Receipt Date: 20090917
  Transmission Date: 20100115
  Serious: Yes (Other)
  Sender: FDA-Public Use
  Company Number: US-PFIZER INC-2009271439

PATIENT
  Sex: Female
  Weight: 56.7 kg

DRUGS (5)
  1. GENOTROPIN [Suspect]
     Indication: GROWTH HORMONE DEFICIENCY
     Dosage: 0.4 MG, 1X/DAY
     Dates: start: 20040101
  2. GENOTROPIN [Suspect]
     Dosage: 0.6 MG, 1X/DAY
  3. GENOTROPIN [Suspect]
     Dosage: 0.8 MG, 1X/DAY
     Dates: end: 20090601
  4. SYNTHROID [Concomitant]
     Indication: HYPOTHYROIDISM
  5. DDAVP [Concomitant]
     Indication: DIABETES INSIPIDUS

REACTIONS (4)
  - BREAST DISCOMFORT [None]
  - CLAVICLE FRACTURE [None]
  - RIB FRACTURE [None]
  - UPPER LIMB FRACTURE [None]
